FAERS Safety Report 9500868 (Version 2)
Quarter: 2013Q3

REPORT INFORMATION
  Report Type: Spontaneous
  Country: IS (occurrence: IS)
  Receive Date: 20130905
  Receipt Date: 20130905
  Transmission Date: 20140515
  Serious: Yes (Other)
  Sender: FDA-Public Use
  Company Number: IS-VERTEX PHARMACEUTICALS INC-2013-006745

PATIENT
  Age: 64 Year
  Sex: Female

DRUGS (3)
  1. INCIVO [Suspect]
     Indication: HEPATITIS C
     Dosage: 750 MG, UNK
     Dates: start: 20130531, end: 20130726
  2. PEGINTERFERON ALFA [Concomitant]
     Indication: HEPATITIS C
     Dosage: QW
     Route: 050
     Dates: start: 20130531
  3. COPEGUS [Concomitant]
     Indication: HEPATITIS C
     Dosage: 600 MG, BID
     Dates: start: 20130531

REACTIONS (6)
  - Rash [Recovered/Resolved]
  - Tremor [Unknown]
  - Pyrexia [Unknown]
  - Malaise [Unknown]
  - Vomiting [Unknown]
  - Nausea [Not Recovered/Not Resolved]
